FAERS Safety Report 20067716 (Version 1)
Quarter: 2021Q4

REPORT INFORMATION
  Report Type: Spontaneous
  Country: NO (occurrence: NO)
  Receive Date: 20211115
  Receipt Date: 20211115
  Transmission Date: 20220303
  Serious: Yes (Hospitalization, Other)
  Sender: FDA-Public Use
  Company Number: None

PATIENT
  Age: 56 Year
  Sex: Female
  Weight: 73 kg

DRUGS (1)
  1. LAMICTAL [Suspect]
     Active Substance: LAMOTRIGINE
     Indication: Migraine
     Dosage: 25 MG, QD
     Route: 048
     Dates: start: 20210730, end: 20210811

REACTIONS (14)
  - Pyelonephritis [Unknown]
  - Hospitalisation [Recovered/Resolved]
  - Ocular hyperaemia [Recovered/Resolved]
  - Platelet count decreased [Recovered/Resolved]
  - Vomiting [Recovered/Resolved]
  - Erythema [Recovered/Resolved]
  - Mobility decreased [Unknown]
  - Pain [Unknown]
  - Rash [Unknown]
  - Influenza like illness [Unknown]
  - Headache [Unknown]
  - Neck pain [Unknown]
  - Bedridden [Unknown]
  - General physical health deterioration [Unknown]

NARRATIVE: CASE EVENT DATE: 20210801
